FAERS Safety Report 4378791-8 (Version None)
Quarter: 2004Q2

REPORT INFORMATION
  Report Type: 
  Country: None (occurrence: None)
  Receive Date: 20040609
  Receipt Date: 20040526
  Transmission Date: 20050107
  Serious: No
  Sender: FDA-Public Use
  Company Number: FABR-10609

PATIENT
  Age: 17 Year
  Sex: Male
  Weight: 53.2 kg

DRUGS (3)
  1. FABRAZYME [Suspect]
     Indication: FABRY'S DISEASE
     Dosage: 0 MG Q2WKS IV
     Route: 042
     Dates: start: 20040120
  2. APAP TAB [Concomitant]
  3. CLARITIN [Concomitant]

REACTIONS (15)
  - ARTHRALGIA [None]
  - BACK PAIN [None]
  - BLOOD PRESSURE INCREASED [None]
  - CHEST DISCOMFORT [None]
  - DIZZINESS [None]
  - DYSPNOEA [None]
  - FEELING COLD [None]
  - FEELING HOT [None]
  - HEADACHE [None]
  - HEART RATE INCREASED [None]
  - IRRITABILITY [None]
  - PAIN IN EXTREMITY [None]
  - PALLOR [None]
  - PULMONARY CONGESTION [None]
  - RESTLESSNESS [None]
